FAERS Safety Report 8053245-6 (Version None)
Quarter: 2012Q1

REPORT INFORMATION
  Report Type: 
  Country: None (occurrence: None)
  Receive Date: 20120118
  Receipt Date: 20120112
  Transmission Date: 20120608
  Serious: Yes (Hospitalization)
  Sender: FDA-Public Use
  Company Number: NL-ROCHE-1030138

PATIENT
  Sex: Female
  Weight: 91 kg

DRUGS (22)
  1. THYROX [Concomitant]
  2. METOCLOPRAMIDE [Concomitant]
  3. LORAZEPAM [Concomitant]
  4. OMEPRAZOLE [Concomitant]
  5. HALOPERIDOL [Concomitant]
  6. DOXORUBICIN HCL [Suspect]
     Indication: DIFFUSE LARGE B-CELL LYMPHOMA
     Route: 042
     Dates: start: 20111003
  7. FLUNITRAZEPAM [Concomitant]
  8. PREDNISONE TAB [Suspect]
     Indication: DIFFUSE LARGE B-CELL LYMPHOMA
     Route: 048
     Dates: start: 20111003
  9. COTRIM [Concomitant]
  10. VITAMIN B COMPLEX CAP [Concomitant]
  11. VINCRISTINE [Suspect]
     Indication: DIFFUSE LARGE B-CELL LYMPHOMA
     Route: 042
     Dates: start: 20111003
  12. FILGRASTIM [Suspect]
     Indication: DIFFUSE LARGE B-CELL LYMPHOMA
     Route: 058
     Dates: start: 20111004
  13. ONDANSETRON [Concomitant]
  14. ASCORBIC ACID/ZINC NOS [Concomitant]
  15. VALACICLOVIR [Concomitant]
  16. FLUTICASONE PROPIONATE [Concomitant]
  17. NEULASTA [Concomitant]
  18. FLUVOXAMINE MALEATE [Concomitant]
  19. MABTHERA [Suspect]
     Indication: DIFFUSE LARGE B-CELL LYMPHOMA
     Route: 042
     Dates: start: 20111003
  20. CYCLOPHOSPHAMIDE [Suspect]
     Indication: DIFFUSE LARGE B-CELL LYMPHOMA
     Route: 042
     Dates: start: 20111003
  21. ACETAMINOPHEN [Concomitant]
     Dosage: AS REQUIRED
  22. DAGRAVIT [Concomitant]

REACTIONS (1)
  - MALAISE [None]
